FAERS Safety Report 24739360 (Version 2)
Quarter: 2025Q3

REPORT INFORMATION
  Report Type: Spontaneous
  Country: EU (occurrence: EU)
  Receive Date: 20241216
  Receipt Date: 20250819
  Transmission Date: 20251021
  Serious: Yes (Other)
  Sender: MYLAN
  Company Number: EU-SA-2019SA183167

PATIENT
  Age: 40 Year
  Sex: Male

DRUGS (12)
  1. OXALIPLATIN [Suspect]
     Active Substance: OXALIPLATIN
     Indication: Rectal adenocarcinoma
  2. OXALIPLATIN [Suspect]
     Active Substance: OXALIPLATIN
     Route: 065
  3. OXALIPLATIN [Suspect]
     Active Substance: OXALIPLATIN
     Route: 065
  4. OXALIPLATIN [Suspect]
     Active Substance: OXALIPLATIN
  5. IRINOTECAN [Suspect]
     Active Substance: IRINOTECAN
     Indication: Rectal adenocarcinoma
     Dosage: 65 MILLIGRAM, QW (65 MG/MP)
  6. IRINOTECAN [Suspect]
     Active Substance: IRINOTECAN
     Dosage: 65 MILLIGRAM, QW (65 MG/MP)
     Route: 065
  7. IRINOTECAN [Suspect]
     Active Substance: IRINOTECAN
     Dosage: 65 MILLIGRAM, QW (65 MG/MP)
     Route: 065
  8. IRINOTECAN [Suspect]
     Active Substance: IRINOTECAN
     Dosage: 65 MILLIGRAM, QW (65 MG/MP)
  9. CAPECITABINE [Suspect]
     Active Substance: CAPECITABINE
     Indication: Rectal adenocarcinoma
  10. CAPECITABINE [Suspect]
     Active Substance: CAPECITABINE
     Route: 065
  11. CAPECITABINE [Suspect]
     Active Substance: CAPECITABINE
     Route: 065
  12. CAPECITABINE [Suspect]
     Active Substance: CAPECITABINE

REACTIONS (5)
  - Cardiotoxicity [Unknown]
  - Angina pectoris [Unknown]
  - Chest pain [Unknown]
  - Diarrhoea [Unknown]
  - Therapeutic product effect incomplete [Unknown]
